FAERS Safety Report 7801574-0 (Version None)
Quarter: 2011Q4

REPORT INFORMATION
  Report Type: 
  Country: None (occurrence: None)
  Receive Date: 20111006
  Receipt Date: 20111006
  Transmission Date: 20120403
  Serious: Yes (Hospitalization)
  Sender: FDA-Public Use
  Company Number: None

PATIENT
  Age: 72 Year
  Sex: Female
  Weight: 47.4 kg

DRUGS (6)
  1. BLEOMYCIN SULFATE [Suspect]
     Indication: HODGKIN'S DISEASE
     Dosage: RECENT
  2. CRESTOR [Concomitant]
  3. PREDNISONE [Concomitant]
  4. ALBUTEROL [Concomitant]
  5. GLYBURIDE AND METFORMIN HYDROCHLORIDE [Concomitant]
  6. KLOR-CON [Concomitant]

REACTIONS (11)
  - COUGH [None]
  - CONDITION AGGRAVATED [None]
  - THERAPEUTIC RESPONSE DECREASED [None]
  - DYSPNOEA [None]
  - PYREXIA [None]
  - PULMONARY TOXICITY [None]
  - UNEVALUABLE EVENT [None]
  - SINUS TACHYCARDIA [None]
  - LUNG INFILTRATION [None]
  - ORAL CANDIDIASIS [None]
  - HYPOXIA [None]
